FAERS Safety Report 21738784 (Version 1)
Quarter: 2022Q4

REPORT INFORMATION
  Report Type: Spontaneous
  Country: ID (occurrence: ID)
  Receive Date: 20221216
  Receipt Date: 20221216
  Transmission Date: 20230113
  Serious: Yes (Hospitalization)
  Sender: FDA-Public Use
  Company Number: ID-BoehringerIngelheim-2022-BI-207423

PATIENT
  Sex: Female

DRUGS (1)
  1. GILOTRIF [Suspect]
     Active Substance: AFATINIB
     Indication: Product used for unknown indication

REACTIONS (7)
  - Haemoglobin decreased [Unknown]
  - Condition aggravated [Unknown]
  - Generalised oedema [Not Recovered/Not Resolved]
  - Hypovitaminosis [Unknown]
  - Peripheral swelling [Not Recovered/Not Resolved]
  - Candida infection [Unknown]
  - Diarrhoea [Recovered/Resolved]

NARRATIVE: CASE EVENT DATE: 20221201
